FAERS Safety Report 22182654 (Version 4)
Quarter: 2023Q2

REPORT INFORMATION
  Report Type: Spontaneous
  Country: US (occurrence: US)
  Receive Date: 20230406
  Receipt Date: 20230612
  Transmission Date: 20230722
  Serious: Yes (Hospitalization)
  Sender: FDA-Public Use
  Company Number: US-BAYER-2023A042960

PATIENT
  Age: 26 Year
  Sex: Male

DRUGS (2)
  1. JIVI [Suspect]
     Active Substance: DAMOCTOCOG ALFA PEGOL
     Indication: Factor VIII deficiency
     Dosage: 5000 IU, BIW
     Route: 042
     Dates: start: 202001
  2. JIVI [Suspect]
     Active Substance: DAMOCTOCOG ALFA PEGOL
     Indication: Factor VIII deficiency
     Dosage: 5000 IU, PRN
     Route: 042
     Dates: start: 202001

REACTIONS (4)
  - Central venous catheter removal [Not Recovered/Not Resolved]
  - Central venous catheterisation [Not Recovered/Not Resolved]
  - Catheter site pain [None]
  - Headache [None]

NARRATIVE: CASE EVENT DATE: 20230328
